FAERS Safety Report 21950208 (Version 1)
Quarter: 2023Q1

REPORT INFORMATION
  Report Type: Spontaneous
  Country: US (occurrence: None)
  Receive Date: 20230202
  Receipt Date: 20230202
  Transmission Date: 20230418
  Serious: Yes (Life-Threatening, Hospitalization)
  Sender: FDA-Public Use
  Company Number: None

PATIENT
  Age: 81 Year
  Sex: Female
  Weight: 61 kg

DRUGS (13)
  1. ROMOSOZUMAB [Suspect]
     Active Substance: ROMOSOZUMAB
     Indication: Osteoporosis
     Dosage: OTHER FREQUENCY : MONTHL;?
     Route: 058
     Dates: start: 20220627, end: 20221103
  2. ATORVASTATIN [Concomitant]
     Active Substance: ATORVASTATIN
  3. Buprenorphine 10mcg/hr weekly transdermal patch [Concomitant]
  4. furosemide 20mg daily [Concomitant]
  5. GABAPENTIN [Concomitant]
     Active Substance: GABAPENTIN
  6. Gemtesa 75mg daily [Concomitant]
  7. Hydroxyzine 25mg daily [Concomitant]
  8. levothyroxine 88mcg daily [Concomitant]
  9. Linzess 290mcg daily [Concomitant]
  10. Pantoprazole 40mg BID [Concomitant]
  11. potassium chloride 10mEq daily [Concomitant]
  12. Spironolactone 10mg daily [Concomitant]
  13. VITAMIN D3 [Concomitant]
     Active Substance: CHOLECALCIFEROL

REACTIONS (1)
  - Acute myocardial infarction [None]

NARRATIVE: CASE EVENT DATE: 20230106
